FAERS Safety Report 14430764 (Version 1)
Quarter: 2018Q1

REPORT INFORMATION
  Report Type: Report from Study
  Country: None (occurrence: CA)
  Receive Date: 20180124
  Receipt Date: 20180124
  Transmission Date: 20180509
  Serious: Yes (Other)
  Sender: FDA-Public Use
  Company Number: CA-ABBVIE-18K-028-2232311-00

PATIENT
  Sex: Male

DRUGS (2)
  1. HUMIRA [Suspect]
     Active Substance: ADALIMUMAB
     Indication: CROHN^S DISEASE
     Route: 058
     Dates: start: 20121115, end: 201711
  2. HUMIRA [Suspect]
     Active Substance: ADALIMUMAB
     Route: 058
     Dates: start: 2017

REACTIONS (13)
  - Cerebral ischaemia [Unknown]
  - Balance disorder [Not Recovered/Not Resolved]
  - Faecal volume increased [Not Recovered/Not Resolved]
  - Transient ischaemic attack [Unknown]
  - Abnormal faeces [Not Recovered/Not Resolved]
  - Memory impairment [Not Recovered/Not Resolved]
  - Cognitive disorder [Unknown]
  - Skin induration [Recovered/Resolved]
  - Hypotension [Recovered/Resolved]
  - Constipation [Not Recovered/Not Resolved]
  - Brain injury [Unknown]
  - Mood altered [Not Recovered/Not Resolved]
  - Stress [Unknown]

NARRATIVE: CASE EVENT DATE: 2017
